FAERS Safety Report 21519893 (Version 6)
Quarter: 2024Q2

REPORT INFORMATION
  Report Type: Report from Study
  Country: US (occurrence: US)
  Receive Date: 20221028
  Receipt Date: 20240408
  Transmission Date: 20240716
  Serious: No
  Sender: FDA-Public Use
  Company Number: US-NOVARTISTESTPH-NVSC2022US241960

PATIENT
  Age: 8 Year
  Sex: Male

DRUGS (3)
  1. ILARIS [Suspect]
     Active Substance: CANAKINUMAB
     Indication: Juvenile idiopathic arthritis
     Dosage: 110 MG, Q4W
     Route: 058
     Dates: start: 20221018
  2. ILARIS [Suspect]
     Active Substance: CANAKINUMAB
     Dosage: 110 MG, QMO
     Route: 058
     Dates: start: 20221022, end: 20221118
  3. ILARIS [Suspect]
     Active Substance: CANAKINUMAB
     Dosage: 110 MG, Q4W
     Route: 058
     Dates: start: 20221018

REACTIONS (4)
  - Nausea [Recovered/Resolved]
  - Dizziness [Recovered/Resolved]
  - Abdominal pain upper [Recovered/Resolved]
  - Inappropriate schedule of product administration [Unknown]

NARRATIVE: CASE EVENT DATE: 20221023
